FAERS Safety Report 9125911 (Version 1)
Quarter: 2013Q1

REPORT INFORMATION
  Report Type: Spontaneous
  Country: US (occurrence: US)
  Receive Date: 20130121
  Receipt Date: 20130121
  Transmission Date: 20140127
  Serious: Yes (Other)
  Sender: FDA-Public Use
  Company Number: US-BAYER-2013-006850

PATIENT
  Age: 69 Year
  Sex: Female
  Weight: 66 kg

DRUGS (8)
  1. BAYER ASPIRIN REGIMEN ADULT LOW STRENGTH [Suspect]
     Indication: ISCHAEMIC HEART DISEASE PROPHYLAXIS
     Dosage: 1 DF, UNK
     Route: 048
  2. CITRACAL PETITES [Concomitant]
  3. BLOOD PRESSURE MEDICATION (NOS) [Concomitant]
     Indication: HYPERTENSION
  4. DIURETICS [Concomitant]
  5. FLAXSEED OIL [Concomitant]
  6. CENTRUM SILVER [Concomitant]
  7. ESTRACE [Concomitant]
  8. PROVERA [Concomitant]

REACTIONS (1)
  - Skin haemorrhage [Not Recovered/Not Resolved]
